FAERS Safety Report 13745772 (Version 3)
Quarter: 2017Q3

REPORT INFORMATION
  Report Type: Spontaneous
  Country: AU (occurrence: US)
  Receive Date: 20170712
  Receipt Date: 20170725
  Transmission Date: 20171127
  Serious: Yes (Other)
  Sender: FDA-Public Use
  Company Number: AU-SA-2017SA121198

PATIENT
  Age: 29 Year
  Sex: Male
  Weight: 72 kg

DRUGS (1)
  1. UNISOM SLEEPGELS NIGHTTIME SLEEP-AID [Suspect]
     Active Substance: DIPHENHYDRAMINE HYDROCHLORIDE
     Dosage: FORM: SOFTGELS, DOSE: 1-2 DOSES PER DAY
     Route: 065
     Dates: start: 20170506, end: 20170605

REACTIONS (3)
  - Vision blurred [Recovered/Resolved]
  - Dizziness [Recovered/Resolved]
  - Visual impairment [Recovered/Resolved]

NARRATIVE: CASE EVENT DATE: 20170605
